FAERS Safety Report 12920261 (Version 1)
Quarter: 2016Q4

REPORT INFORMATION
  Report Type: Spontaneous
  Country: US (occurrence: US)
  Receive Date: 20161107
  Receipt Date: 20161107
  Transmission Date: 20170207
  Serious: No
  Sender: FDA-Public Use
  Company Number: US-SHIRE-US201616365

PATIENT
  Age: 14 Year
  Sex: Male
  Weight: 72.56 kg

DRUGS (1)
  1. ADDERALL XR [Suspect]
     Active Substance: AMPHETAMINE ASPARTATE\AMPHETAMINE SULFATE\DEXTROAMPHETAMINE SACCHARATE\DEXTROAMPHETAMINE SULFATE
     Indication: ATTENTION DEFICIT/HYPERACTIVITY DISORDER
     Dosage: 20 MG, 2X/DAY:BID
     Route: 048
     Dates: start: 201610

REACTIONS (13)
  - Educational problem [Unknown]
  - Seasonal allergy [Not Recovered/Not Resolved]
  - Asthenia [Unknown]
  - Prescribed overdose [Not Recovered/Not Resolved]
  - Daydreaming [Not Recovered/Not Resolved]
  - Disturbance in attention [Not Recovered/Not Resolved]
  - Feeling abnormal [Unknown]
  - Mood altered [Not Recovered/Not Resolved]
  - Unevaluable event [Not Recovered/Not Resolved]
  - Drug ineffective [Not Recovered/Not Resolved]
  - Inappropriate schedule of drug administration [Not Recovered/Not Resolved]
  - Apathy [Not Recovered/Not Resolved]
  - Feeling of relaxation [Not Recovered/Not Resolved]

NARRATIVE: CASE EVENT DATE: 2016
